FAERS Safety Report 11842906 (Version 2)
Quarter: 2016Q1

REPORT INFORMATION
  Report Type: Spontaneous
  Country: US (occurrence: US)
  Receive Date: 20151216
  Receipt Date: 20160126
  Transmission Date: 20160526
  Serious: No
  Sender: FDA-Public Use
  Company Number: US-PFIZER INC-2015430879

PATIENT
  Age: 77 Year
  Sex: Male
  Weight: 83.9 kg

DRUGS (3)
  1. ADVIL PM [Suspect]
     Active Substance: DIPHENHYDRAMINE CITRATE\IBUPROFEN
     Indication: ARTHRALGIA
     Dosage: 2 CAPSULES IN THE EVENING 200 MG/38 MG
     Route: 048
     Dates: start: 20151202, end: 201512
  2. AMLODIPINE [Concomitant]
     Active Substance: AMLODIPINE BESYLATE
     Indication: BLOOD PRESSURE ABNORMAL
     Dosage: 5 MG, 1X/DAY
     Dates: start: 201509
  3. ADVIL PM [Suspect]
     Active Substance: DIPHENHYDRAMINE CITRATE\IBUPROFEN
     Indication: SLEEP DISORDER

REACTIONS (3)
  - Poor quality sleep [Unknown]
  - Drug ineffective [Unknown]
  - Nervousness [Unknown]

NARRATIVE: CASE EVENT DATE: 20151202
